FAERS Safety Report 7201673-0 (Version None)
Quarter: 2010Q4

REPORT INFORMATION
  Report Type: 
  Country: None (occurrence: None)
  Receive Date: 20101229
  Receipt Date: 20101221
  Transmission Date: 20110411
  Serious: Yes (Other)
  Sender: FDA-Public Use
  Company Number: RU-PFIZER INC-2010177316

PATIENT
  Age: 64 Year
  Sex: Female

DRUGS (7)
  1. SILDENAFIL CITRATE [Suspect]
     Indication: PULMONARY HYPERTENSION
     Dosage: 25 MG, 3X/DAY
     Route: 048
     Dates: start: 20100501
  2. AMITRIPTYLINE [Concomitant]
     Indication: EMOTIONAL DISORDER
     Dosage: 1/4 OF A TABLET IN THE MORNING, 1/4 OF A TABLET AT NOON, 1/2 OF A TABLET BEFORE NIGHT
     Route: 048
  3. SIOFOR [Concomitant]
     Indication: DIABETES MELLITUS
     Dosage: 1 G, 2X/DAY (MORNING AND EVENING)
     Route: 048
     Dates: start: 20100701
  4. VEROSPIRON [Concomitant]
     Indication: PULMONARY HYPERTENSION
     Dosage: 25 MG, 2X/DAY (MORNING, EVENING)
     Route: 048
     Dates: start: 20100601
  5. TORASEMIDE [Concomitant]
     Indication: OEDEMA
     Dosage: 40 MG, ALTERNATE DAY
     Dates: start: 20100601
  6. ASPIRIN [Concomitant]
     Dosage: 100 MG, 1X/DAY, BEFORE NIGHT AT EVEN DAYS OF THE WEEK
     Route: 048
     Dates: start: 20100601
  7. CARDIOMAGNYL [Concomitant]
     Dosage: 75 MG, ALTERNATE DAY, AT ODD DAYS OF THE WEEK
     Route: 048
     Dates: start: 20100601

REACTIONS (2)
  - ANGINA PECTORIS [None]
  - PALPITATIONS [None]
